FAERS Safety Report 24987326 (Version 1)
Quarter: 2025Q1

REPORT INFORMATION
  Report Type: Spontaneous
  Country: US (occurrence: US)
  Receive Date: 20250219
  Receipt Date: 20250219
  Transmission Date: 20250409
  Serious: No
  Sender: PFIZER
  Company Number: US-PFIZER INC-202500034093

PATIENT
  Sex: Female
  Weight: 71.2 kg

DRUGS (3)
  1. METHOTREXATE SODIUM [Suspect]
     Active Substance: METHOTREXATE SODIUM
     Dates: end: 2018
  2. PREDNISONE [Concomitant]
     Active Substance: PREDNISONE
     Dates: end: 2018
  3. PLAQUENIL [Concomitant]
     Active Substance: HYDROXYCHLOROQUINE SULFATE
     Dates: end: 2018

REACTIONS (2)
  - Infection [Unknown]
  - Drug hypersensitivity [Unknown]
